FAERS Safety Report 9343365 (Version 1)
Quarter: 2013Q2

REPORT INFORMATION
  Report Type: Spontaneous
  Country: US (occurrence: US)
  Receive Date: 20130612
  Receipt Date: 20130612
  Transmission Date: 20140414
  Serious: Yes (Death)
  Sender: FDA-Public Use
  Company Number: US-AMGEN-USASP2013040908

PATIENT
  Sex: Female

DRUGS (1)
  1. ENBREL [Suspect]
     Indication: NEOPLASM MALIGNANT
     Dosage: UNK
     Route: 065

REACTIONS (3)
  - Death [Fatal]
  - Rash [Unknown]
  - Skin ulcer [Unknown]
